FAERS Safety Report 4515256-4 (Version None)
Quarter: 2004Q4

REPORT INFORMATION
  Report Type: 
  Country: None (occurrence: None)
  Receive Date: 20041130
  Receipt Date: 20041130
  Transmission Date: 20050328
  Serious: Yes (Other)
  Sender: FDA-Public Use
  Company Number: None

PATIENT
  Age: 50 Year
  Sex: Female

DRUGS (6)
  1. OLANZAPINE [Suspect]
     Indication: CATATONIA
     Dosage: 10 MG IM X 1
     Route: 030
     Dates: start: 20040716
  2. LORAZEPAM [Suspect]
     Indication: CATATONIA
     Dosage: 2 MG IM X 1
     Route: 030
     Dates: start: 20040716
  3. DIVALPROEX SODIUM [Concomitant]
  4. BENZTROPINE MESYLATE [Concomitant]
  5. HALOPERIDOL [Concomitant]
  6. CEFTIZOXIME [Concomitant]

REACTIONS (3)
  - CATATONIA [None]
  - HYPOTENSION [None]
  - MARKEDLY REDUCED DIETARY INTAKE [None]
